FAERS Safety Report 14875160 (Version 1)
Quarter: 2018Q2

REPORT INFORMATION
  Report Type: Spontaneous
  Country: FR (occurrence: FR)
  Receive Date: 20180510
  Receipt Date: 20180510
  Transmission Date: 20180711
  Serious: No
  Sender: FDA-Public Use
  Company Number: FR-ELI_LILLY_AND_COMPANY-FR201805002386

PATIENT
  Sex: Male

DRUGS (1)
  1. CIALIS [Suspect]
     Active Substance: TADALAFIL
     Indication: ERECTILE DYSFUNCTION
     Dosage: 10 OR 20 MG OCCASIONALLY
     Route: 065
     Dates: start: 2013

REACTIONS (3)
  - Ocular hyperaemia [Unknown]
  - Wrong technique in product usage process [Unknown]
  - Asthenopia [Unknown]
